FAERS Safety Report 25886947 (Version 1)
Quarter: 2025Q4

REPORT INFORMATION
  Report Type: Spontaneous
  Country: US (occurrence: US)
  Receive Date: 20251006
  Receipt Date: 20251006
  Transmission Date: 20260118
  Serious: No
  Sender: NOVARTIS
  Company Number: US-002147023-NVSC2025US150025

PATIENT
  Sex: Male

DRUGS (1)
  1. KESIMPTA [Suspect]
     Active Substance: OFATUMUMAB
     Indication: Multiple sclerosis
     Dosage: 20M, QW
     Route: 065

REACTIONS (4)
  - Back pain [Unknown]
  - Asthenia [Unknown]
  - Dyspnoea [Unknown]
  - Respiratory disorder [Unknown]
